FAERS Safety Report 18990972 (Version 2)
Quarter: 2021Q2

REPORT INFORMATION
  Report Type: Spontaneous
  Country: JP (occurrence: JP)
  Receive Date: 20210310
  Receipt Date: 20210401
  Transmission Date: 20210717
  Serious: Yes (Hospitalization, Other)
  Sender: FDA-Public Use
  Company Number: JP-AMGEN-JPNSP2020197244

PATIENT
  Age: 60 Year

DRUGS (4)
  1. BLINCYTO [Suspect]
     Active Substance: BLINATUMOMAB
     Indication: B PRECURSOR TYPE ACUTE LEUKAEMIA
     Dosage: 4.5 MICROGRAM, QD
     Route: 041
     Dates: start: 20201130, end: 20201130
  2. BLINCYTO [Suspect]
     Active Substance: BLINATUMOMAB
     Dosage: 9 MICROGRAM, QD
     Route: 041
     Dates: start: 20201215, end: 20201218
  3. BLINCYTO [Suspect]
     Active Substance: BLINATUMOMAB
     Dosage: 4.5 MICROGRAM, QD
     Route: 041
     Dates: start: 20201210, end: 20201215
  4. BLINCYTO [Suspect]
     Active Substance: BLINATUMOMAB
     Dosage: 28 MICROGRAM, QD
     Route: 041
     Dates: start: 20201218, end: 20201228

REACTIONS (5)
  - Off label use [Unknown]
  - Cytokine release syndrome [Recovered/Resolved]
  - Acute lymphocytic leukaemia [Not Recovered/Not Resolved]
  - Febrile neutropenia [Recovered/Resolved]
  - Pyrexia [Recovered/Resolved]

NARRATIVE: CASE EVENT DATE: 20201130
